FAERS Safety Report 8880422 (Version 1)
Quarter: 2012Q4

REPORT INFORMATION
  Report Type: 
  Country: GB (occurrence: GB)
  Receive Date: 20121101
  Receipt Date: 20121101
  Transmission Date: 20130627
  Serious: Yes (Hospitalization)
  Sender: FDA-Public Use
  Company Number: PHHO2012GB015742

PATIENT
  Age: 68 Year
  Sex: Male
  Weight: 93 kg

DRUGS (2)
  1. DICLOFENAC [Suspect]
     Indication: OSTEOARTHRITIS
     Dosage: 50 mg, BID
     Route: 048
     Dates: start: 20110310, end: 20120928
  2. CO-DYDRAMOL [Concomitant]
     Indication: ROTATOR CUFF SYNDROME
     Dosage: 10mg/500 mg
     Dates: start: 20120126

REACTIONS (1)
  - Angina pectoris [Recovered/Resolved with Sequelae]
